FAERS Safety Report 23163255 (Version 3)
Quarter: 2023Q4

REPORT INFORMATION
  Report Type: Spontaneous
  Country: US (occurrence: US)
  Receive Date: 20231109
  Receipt Date: 20231116
  Transmission Date: 20240110
  Serious: Yes (Other)
  Sender: FDA-Public Use
  Company Number: US-GILEAD-2023-0650037

PATIENT
  Sex: Male

DRUGS (1)
  1. CAYSTON [Suspect]
     Active Substance: AZTREONAM
     Indication: Product used for unknown indication
     Dosage: CAYSTON 75 MG
     Route: 065

REACTIONS (2)
  - Choking [Recovered/Resolved]
  - Product packaging difficult to open [Unknown]
